FAERS Safety Report 25989177 (Version 1)
Quarter: 2025Q4

REPORT INFORMATION
  Report Type: Spontaneous
  Country: JP (occurrence: JP)
  Receive Date: 20251103
  Receipt Date: 20251103
  Transmission Date: 20260118
  Serious: Yes (Life-Threatening, Other)
  Sender: BAXTER
  Company Number: None

PATIENT
  Age: 75 Year
  Sex: Female
  Weight: 40 kg

DRUGS (7)
  1. DOXORUBICIN [Suspect]
     Active Substance: DOXORUBICIN
     Indication: Ovarian cancer
     Dosage: 40MG  ? 6 TIMES
     Route: 042
     Dates: start: 20201013, end: 20210413
  2. CARBOPLATIN [Suspect]
     Active Substance: CARBOPLATIN
     Indication: Ovarian cancer
     Dosage: 316MG ? 6 TIMES
     Route: 042
     Dates: start: 20201013, end: 20210413
  3. CARBOPLATIN [Suspect]
     Active Substance: CARBOPLATIN
     Dosage: UNK
     Route: 042
     Dates: start: 20231107, end: 20240116
  4. LYNPARZA [Suspect]
     Active Substance: OLAPARIB
     Indication: Ovarian cancer
     Dosage: 400 MG, QD
     Route: 048
     Dates: start: 20210615, end: 20230904
  5. GEMCITABINE [Suspect]
     Active Substance: GEMCITABINE
     Indication: Ovarian cancer
     Dosage: 1346MG ? 8 TIMES
     Route: 042
     Dates: start: 20231107, end: 20240123
  6. ZEJULA [Suspect]
     Active Substance: NIRAPARIB
     Indication: Ovarian cancer
     Dosage: 200 MG, QD
     Route: 048
     Dates: start: 20240130, end: 20240430
  7. PACLITAXEL [Suspect]
     Active Substance: PACLITAXEL
     Indication: Ovarian cancer
     Dosage: 106MG ?22TIMES
     Route: 042
     Dates: start: 20240611, end: 20250121

REACTIONS (1)
  - Myelodysplastic syndrome with excess blasts [Unknown]

NARRATIVE: CASE EVENT DATE: 20250121
